FAERS Safety Report 6113144-3 (Version None)
Quarter: 2009Q1

REPORT INFORMATION
  Report Type: 
  Country: None (occurrence: None)
  Receive Date: 20090312
  Receipt Date: 20090305
  Transmission Date: 20090719
  Serious: Yes (Death)
  Sender: FDA-Public Use
  Company Number: JP-AVENTIS-200910108JP

PATIENT
  Age: 80 Year
  Sex: Male
  Weight: 75 kg

DRUGS (4)
  1. TAXOTERE [Suspect]
     Route: 041
     Dates: start: 20081205, end: 20081205
  2. PREDNISOLONE [Concomitant]
     Dosage: DOSE: 5 MG
     Route: 048
     Dates: start: 20081205, end: 20081218
  3. UFT [Concomitant]
     Dates: start: 20080707, end: 20081215
  4. ENDOXAN [Concomitant]
     Dates: start: 20080707, end: 20081215

REACTIONS (7)
  - ANOREXIA [None]
  - BACK PAIN [None]
  - INTERSTITIAL LUNG DISEASE [None]
  - NO THERAPEUTIC RESPONSE [None]
  - RESPIRATORY FAILURE [None]
  - URINARY HESITATION [None]
  - WEIGHT DECREASED [None]
